FAERS Safety Report 8341506-2 (Version None)
Quarter: 2012Q2

REPORT INFORMATION
  Report Type: 
  Country: None (occurrence: None)
  Receive Date: 20120507
  Receipt Date: 20100212
  Transmission Date: 20120825
  Serious: No
  Sender: FDA-Public Use
  Company Number: US-TEVA-2010000541

PATIENT
  Sex: Male
  Weight: 68.1 kg

DRUGS (2)
  1. TREANDA [Suspect]
     Indication: LYMPHOMA
     Route: 042
     Dates: start: 20091110
  2. RITUXAN [Concomitant]
     Indication: LYMPHOMA
     Dates: start: 20091110

REACTIONS (1)
  - RASH [None]
